FAERS Safety Report 19273484 (Version 2)
Quarter: 2021Q4

REPORT INFORMATION
  Report Type: Spontaneous
  Country: GB (occurrence: GB)
  Receive Date: 20210519
  Receipt Date: 20211203
  Transmission Date: 20220303
  Serious: Yes (Other)
  Sender: FDA-Public Use
  Company Number: GB-MHRA-EYC 00249763

PATIENT
  Age: 50 Year
  Sex: Male

DRUGS (1)
  1. CODEINE [Suspect]
     Active Substance: CODEINE
     Indication: Ill-defined disorder
     Dosage: 30MG, UNK
     Route: 048

REACTIONS (8)
  - Adverse drug reaction [Recovered/Resolved]
  - Medication error [Unknown]
  - Loss of consciousness [Recovered/Resolved]
  - Hyperhidrosis [Unknown]
  - Cold sweat [Unknown]
  - Dyskinesia [Unknown]
  - Speech disorder [Unknown]
  - Somnolence [Unknown]
